FAERS Safety Report 4726108-9 (Version None)
Quarter: 2005Q3

REPORT INFORMATION
  Report Type: 
  Country: None (occurrence: None)
  Receive Date: 20050727
  Receipt Date: 20050602
  Transmission Date: 20060218
  Serious: Yes (Disabling)
  Sender: FDA-Public Use
  Company Number: US-MERCK-0506USA00666

PATIENT
  Age: 70 Year
  Sex: Female
  Weight: 65 kg

DRUGS (4)
  1. FOSAMAX [Suspect]
     Indication: OSTEOPOROSIS
     Route: 048
     Dates: end: 20050519
  2. FOSAMAX [Suspect]
     Route: 048
     Dates: start: 19970701
  3. ALLEGRA [Concomitant]
     Route: 065
  4. ULTRACET [Concomitant]
     Route: 065

REACTIONS (2)
  - EXOSTOSIS [None]
  - OSTEONECROSIS [None]
